FAERS Safety Report 9259458 (Version 1)
Quarter: 2013Q2

REPORT INFORMATION
  Report Type: Report from Study
  Country: TW (occurrence: TW)
  Receive Date: 20130428
  Receipt Date: 20130428
  Transmission Date: 20140414
  Serious: No
  Sender: FDA-Public Use
  Company Number: PHHY2013TW041323

PATIENT
  Age: 56 Year
  Sex: Male

DRUGS (21)
  1. AMN107 [Suspect]
     Dosage: 800 MG, UNK
     Dates: start: 20100920, end: 20110119
  2. AMN107 [Suspect]
     Dosage: 600 MG, UNK
     Dates: start: 20110120, end: 20110316
  3. AMN107 [Suspect]
     Dosage: 400 MG, UNK
     Dates: start: 20110317, end: 20110504
  4. AMN107 [Suspect]
     Dosage: 600 MG, UNK
     Dates: start: 20110512, end: 20111005
  5. AMN107 [Suspect]
     Dosage: 800 MG, UNK
     Dates: start: 20111006
  6. ACETAMINOPHEN [Concomitant]
     Indication: PAIN IN EXTREMITY
  7. BACITRACIN-NEOMYCIN [Concomitant]
     Indication: RASH
  8. CALAMINE LOTION [Concomitant]
     Indication: RASH
     Dosage: UNK
     Dates: end: 20110414
  9. CEFADROXIL MONOHYDRATE [Concomitant]
     Indication: ECZEMA
     Dosage: UNK
     Dates: end: 20110512
  10. IBUPROFEN [Concomitant]
     Indication: PAIN
     Dosage: UNK
     Dates: end: 20110120
  11. IBUPROFEN [Concomitant]
     Dosage: UNK
  12. LEVOCETIRIZINE [Concomitant]
     Indication: RASH
     Dosage: UNK
     Dates: end: 20110414
  13. LEVOCETIRIZINE [Concomitant]
     Dosage: UNK
     Dates: end: 20120705
  14. METHOCARBAMOL [Concomitant]
     Indication: MUSCLE SPASMS
     Dosage: UNK
     Dates: end: 20101216
  15. METHOCARBAMOL [Concomitant]
     Dosage: UNK
     Dates: end: 20120705
  16. METHOCARBAMOL [Concomitant]
     Dosage: UNK
  17. NEO-CORTISONE [Concomitant]
     Indication: RASH
     Dosage: UNK
  18. RINDERON [Concomitant]
     Indication: EYE DISCHARGE
     Dosage: UNK
  19. SILYMARIN [Concomitant]
     Indication: LIVER FUNCTION TEST ABNORMAL
     Dosage: UNK
     Dates: end: 20120315
  20. SILYMARIN [Concomitant]
     Dosage: UNK
     Dates: end: 20120830
  21. ULTRACET [Concomitant]
     Indication: BACK PAIN
     Dosage: UNK
     Dates: end: 20121025

REACTIONS (1)
  - Back pain [Unknown]
